FAERS Safety Report 24789796 (Version 2)
Quarter: 2025Q1

REPORT INFORMATION
  Report Type: Report from Study
  Country: CA (occurrence: CA)
  Receive Date: 20241230
  Receipt Date: 20250227
  Transmission Date: 20250409
  Serious: Yes (Hospitalization)
  Sender: PFIZER
  Company Number: CA-TAKEDA-2022TUS099879

PATIENT
  Age: 64 Year
  Sex: Female

DRUGS (12)
  1. PANTOPRAZOLE MAGNESIUM [Suspect]
     Active Substance: PANTOPRAZOLE MAGNESIUM
     Route: 065
  2. ENTYVIO [Suspect]
     Active Substance: VEDOLIZUMAB
     Indication: Crohn^s disease
     Route: 042
     Dates: start: 20180220
  3. ENTYVIO [Suspect]
     Active Substance: VEDOLIZUMAB
     Route: 042
     Dates: start: 20191210
  4. ENTYVIO [Suspect]
     Active Substance: VEDOLIZUMAB
     Route: 042
  5. ENTYVIO [Suspect]
     Active Substance: VEDOLIZUMAB
     Route: 042
  6. ENTYVIO [Suspect]
     Active Substance: VEDOLIZUMAB
     Route: 042
  7. ENTYVIO [Suspect]
     Active Substance: VEDOLIZUMAB
     Route: 042
  8. DULOXETINE [Concomitant]
     Active Substance: DULOXETINE
  9. CELEBREX [Concomitant]
     Active Substance: CELECOXIB
  10. RANITIDINE [Concomitant]
     Active Substance: RANITIDINE
  11. HYDROXYCHLOROQUINE [Concomitant]
     Active Substance: HYDROXYCHLOROQUINE
  12. RISEDRONATE SODIUM [Concomitant]
     Active Substance: RISEDRONATE SODIUM

REACTIONS (2)
  - Haemoglobin decreased [Unknown]
  - Blood pressure increased [Unknown]
